FAERS Safety Report 8519175-8 (Version None)
Quarter: 2012Q3

REPORT INFORMATION
  Report Type: 
  Country: None (occurrence: None)
  Receive Date: 20120718
  Receipt Date: 20120405
  Transmission Date: 20120928
  Serious: Yes (Other)
  Sender: FDA-Public Use
  Company Number: CA-VALEANT-2012VX003185

PATIENT
  Age: 77 Year
  Sex: Male

DRUGS (11)
  1. LIBRAX [Suspect]
     Route: 065
  2. AVELOX [Suspect]
     Route: 048
  3. ASPIRIN [Concomitant]
     Route: 065
  4. EZETIMIBE [Concomitant]
     Route: 065
  5. PANTOPRAZOLE [Concomitant]
     Route: 065
  6. XANAX [Concomitant]
     Route: 065
  7. VENTOLIN [Concomitant]
     Route: 065
  8. ADVAIR DISKUS 100/50 [Concomitant]
     Route: 065
  9. DILTIAZEM [Concomitant]
     Route: 065
  10. ZOPICLONE [Concomitant]
     Route: 065
  11. CRESTOR [Concomitant]
     Route: 065

REACTIONS (1)
  - HYPOACUSIS [None]
